FAERS Safety Report 25322885 (Version 1)
Quarter: 2025Q2

REPORT INFORMATION
  Report Type: Report from Study
  Country: CN (occurrence: CN)
  Receive Date: 20250516
  Receipt Date: 20250516
  Transmission Date: 20250716
  Serious: Yes (Death)
  Sender: ROCHE
  Company Number: CN-ROCHE-10000285338

PATIENT
  Age: 33 Year
  Sex: Female

DRUGS (1)
  1. GLOFITAMAB [Suspect]
     Active Substance: GLOFITAMAB
     Indication: Diffuse large B-cell lymphoma
     Route: 042
     Dates: start: 20250401

REACTIONS (2)
  - Disease progression [Fatal]
  - Asthenia [Unknown]
